FAERS Safety Report 9719972 (Version 2)
Quarter: 2014Q1

REPORT INFORMATION
  Report Type: Spontaneous
  Country: US (occurrence: US)
  Receive Date: 20131128
  Receipt Date: 20140122
  Transmission Date: 20141002
  Serious: Yes (Disabling)
  Sender: FDA-Public Use
  Company Number: US-MERCK-1311USA010025

PATIENT
  Sex: Female

DRUGS (4)
  1. ZETIA [Suspect]
     Indication: BLOOD CHOLESTEROL INCREASED
     Dosage: 10 MG, QD
     Route: 048
     Dates: start: 2008
  2. ZETIA [Suspect]
     Dosage: UNK
     Route: 048
     Dates: start: 201310
  3. STATIN (UNSPECIFIED) [Suspect]
  4. WELCHOL [Concomitant]

REACTIONS (5)
  - Walking disability [Unknown]
  - Muscular weakness [Recovered/Resolved]
  - Foot deformity [Unknown]
  - Pain in extremity [Recovered/Resolved]
  - Hypersensitivity [Unknown]
